FAERS Safety Report 10524263 (Version 1)
Quarter: 2014Q4

REPORT INFORMATION
  Report Type: Spontaneous
  Country: US (occurrence: None)
  Receive Date: 20141015
  Receipt Date: 20141015
  Transmission Date: 20150528
  Serious: Yes (Life-Threatening, Hospitalization, Other)
  Sender: FDA-Public Use
  Company Number: None

PATIENT
  Age: 34 Year
  Sex: Female
  Weight: 54.43 kg

DRUGS (1)
  1. ABILIFY [Suspect]
     Active Substance: ARIPIPRAZOLE
     Indication: BIPOLAR DISORDER
     Dosage: 1/2 PILL ONCE DAILY TAKEN BY MOUTH
     Route: 048
     Dates: start: 20141003, end: 20141007

REACTIONS (8)
  - Dizziness [None]
  - Hypoaesthesia [None]
  - Pyrexia [None]
  - Self-injurious ideation [None]
  - Anger [None]
  - Paraesthesia [None]
  - Confusional state [None]
  - Frustration [None]

NARRATIVE: CASE EVENT DATE: 20141008
